FAERS Safety Report 12929396 (Version 1)
Quarter: 2016Q4

REPORT INFORMATION
  Report Type: Spontaneous
  Country: US (occurrence: US)
  Receive Date: 20161110
  Receipt Date: 20161110
  Transmission Date: 20170207
  Serious: Yes (Hospitalization, Other)
  Sender: FDA-Public Use
  Company Number: US-GLAXOSMITHKLINE-US2016GSK158708

PATIENT
  Age: 73 Year
  Sex: Female

DRUGS (3)
  1. NICOTINE. [Suspect]
     Active Substance: NICOTINE
  2. RISPERIDONE. [Interacting]
     Active Substance: RISPERIDONE
     Indication: AGITATION
  3. RISPERIDONE. [Interacting]
     Active Substance: RISPERIDONE
     Indication: DEPRESSION

REACTIONS (12)
  - Overdose [Unknown]
  - Frustration tolerance decreased [Unknown]
  - Hallucination [Unknown]
  - Agitation [Unknown]
  - Confusional state [Unknown]
  - Nicotine dependence [Unknown]
  - Drug level increased [Unknown]
  - Drug level decreased [Unknown]
  - Toxicity to various agents [Unknown]
  - Tremor [Unknown]
  - Mental status changes [Unknown]
  - Drug interaction [Unknown]
